FAERS Safety Report 23457646 (Version 2)
Quarter: 2024Q1

REPORT INFORMATION
  Report Type: Spontaneous
  Country: US (occurrence: US)
  Receive Date: 20240130
  Receipt Date: 20240130
  Transmission Date: 20240409
  Serious: No
  Sender: FDA-Public Use
  Company Number: US-GALDERMA-US2023008978

PATIENT

DRUGS (3)
  1. IVERMECTIN [Suspect]
     Active Substance: IVERMECTIN
     Indication: Rosacea
     Dosage: 1 DOSAGE FORM
     Route: 065
  2. AVOBENZONE\OCTISALATE\OCTOCRYLENE [Suspect]
     Active Substance: AVOBENZONE\OCTISALATE\OCTOCRYLENE
     Indication: Dry skin prophylaxis
     Dosage: 1 DOSAGE FORM, TWICE
     Route: 061
     Dates: start: 20230608, end: 20230609
  3. COSMETICS [Suspect]
     Active Substance: COSMETICS
     Indication: Dry skin prophylaxis
     Dosage: 1 DOSAGE FORM
     Route: 061
     Dates: start: 20230608, end: 20230608

REACTIONS (3)
  - Rash [Recovering/Resolving]
  - Skin burning sensation [Recovering/Resolving]
  - Hypersensitivity [Recovering/Resolving]

NARRATIVE: CASE EVENT DATE: 20230609
